FAERS Safety Report 16477955 (Version 5)
Quarter: 2019Q3

REPORT INFORMATION
  Report Type: Report from Study
  Country: US (occurrence: US)
  Receive Date: 20190626
  Receipt Date: 20190729
  Transmission Date: 20191004
  Serious: Yes (Death, Hospitalization, Other)
  Sender: FDA-Public Use
  Company Number: US-TESARO-2019-TSO02218-US

PATIENT
  Sex: Female
  Weight: 50 kg

DRUGS (2)
  1. ZEJULA [Suspect]
     Active Substance: NIRAPARIB
     Dosage: 200 MG, QD AT 9PM WITHOUT FOOD
     Route: 048
     Dates: start: 20190621
  2. ZEJULA [Suspect]
     Active Substance: NIRAPARIB
     Indication: FALLOPIAN TUBE CANCER
     Dosage: 200 MG, QD AT 9PM WITHOUT FOOD
     Route: 065
     Dates: start: 20190611, end: 20190615

REACTIONS (16)
  - Death [Fatal]
  - Pneumonia [Not Recovered/Not Resolved]
  - Hypokalaemia [Not Recovered/Not Resolved]
  - Abdominal mass [Unknown]
  - Dysphagia [Unknown]
  - Red blood cell count decreased [Unknown]
  - Hypomagnesaemia [Unknown]
  - Carbohydrate antigen 125 increased [Unknown]
  - Decreased appetite [Not Recovered/Not Resolved]
  - Anaemia [Unknown]
  - Blood magnesium decreased [Unknown]
  - Blood pressure decreased [Not Recovered/Not Resolved]
  - Loss of consciousness [Not Recovered/Not Resolved]
  - Pain [Unknown]
  - Constipation [Not Recovered/Not Resolved]
  - Tachycardia [Not Recovered/Not Resolved]
